FAERS Safety Report 8863018 (Version 1)
Quarter: 2012Q4

REPORT INFORMATION
  Report Type: 
  Country: US (occurrence: US)
  Receive Date: 20121026
  Receipt Date: 20121026
  Transmission Date: 20130627
  Serious: No
  Sender: FDA-Public Use
  Company Number: US-ALLERGAN-1200967US

PATIENT
  Sex: Male

DRUGS (6)
  1. ALPHAGAN P [Suspect]
     Indication: INTRAOCULAR PRESSURE
     Dosage: 2 Gtt, bid
     Route: 047
     Dates: start: 201201
  2. ALPHAGAN P [Suspect]
     Dosage: 2 Gtt, bid
     Route: 047
     Dates: start: 2008
  3. LUMIGAN [Concomitant]
     Indication: INTRAOCULAR PRESSURE
     Dosage: 2 Gtt, qhs
     Route: 047
  4. LUMIGAN [Concomitant]
     Dosage: 2 Gtt, bid
     Route: 047
     Dates: start: 2008
  5. COSOPT [Concomitant]
     Indication: INTRAOCULAR PRESSURE
     Dosage: 2 Gtt, bid
     Route: 047
  6. COSOPT [Concomitant]
     Dosage: 2 Gtt, bid
     Route: 047
     Dates: start: 2008

REACTIONS (4)
  - Lacrimation increased [Not Recovered/Not Resolved]
  - Instillation site erythema [Not Recovered/Not Resolved]
  - Instillation site pain [Not Recovered/Not Resolved]
  - Instillation site pruritus [Not Recovered/Not Resolved]
